FAERS Safety Report 23387409 (Version 1)
Quarter: 2024Q1

REPORT INFORMATION
  Report Type: Spontaneous
  Country: US (occurrence: US)
  Receive Date: 20240110
  Receipt Date: 20240110
  Transmission Date: 20240409
  Serious: Yes (Death, Hospitalization)
  Sender: FDA-Public Use
  Company Number: US-BAYER-2024A002389

PATIENT
  Age: 52 Year
  Sex: Male

DRUGS (5)
  1. ACETAMINOPHEN\DEXTROMETHORPHAN\PHENYLEPHRINE [Suspect]
     Active Substance: ACETAMINOPHEN\DEXTROMETHORPHAN\PHENYLEPHRINE
     Dosage: UNK
     Route: 048
  2. LEVOCETIRIZINE [Suspect]
     Active Substance: LEVOCETIRIZINE
  3. LISINOPRIL [Suspect]
     Active Substance: LISINOPRIL
  4. AMLODIPINE [Suspect]
     Active Substance: AMLODIPINE BESYLATE
  5. FAT EMULSION NOS [Suspect]
     Active Substance: EGG PHOSPHOLIPIDS\SAFFLOWER OIL\SOYBEAN OIL

REACTIONS (2)
  - Completed suicide [Fatal]
  - Toxicity to various agents [Fatal]
